FAERS Safety Report 5242332-3 (Version None)
Quarter: 2007Q1

REPORT INFORMATION
  Report Type: 
  Country: None (occurrence: None)
  Receive Date: 20070214
  Receipt Date: 20070202
  Transmission Date: 20070707
  Serious: Yes (Other)
  Sender: FDA-Public Use
  Company Number: 2007SP002144

PATIENT
  Sex: Female

DRUGS (2)
  1. PEG-INTRON [Suspect]
     Dates: start: 20060701, end: 20061201
  2. REBETOL [Suspect]
     Dosage: PO
     Route: 048
     Dates: start: 20060701, end: 20061201

REACTIONS (2)
  - DRUG EXPOSURE DURING PREGNANCY [None]
  - ECTOPIC PREGNANCY [None]
